FAERS Safety Report 9711131 (Version 1)
Quarter: 2013Q4

REPORT INFORMATION
  Report Type: Spontaneous
  Country: US (occurrence: US)
  Receive Date: 20131126
  Receipt Date: 20131126
  Transmission Date: 20140711
  Serious: No
  Sender: FDA-Public Use
  Company Number: US-BRISTOL-MYERS SQUIBB COMPANY-19152511

PATIENT
  Age: 64 Year
  Sex: Female
  Weight: 82.08 kg

DRUGS (3)
  1. BYETTA [Suspect]
     Indication: TYPE 2 DIABETES MELLITUS
     Dates: start: 20130531, end: 20130717
  2. LANTUS [Concomitant]
     Dosage: ONCE IN THE EVENING
  3. VICTOZA [Concomitant]
     Dates: start: 20130718

REACTIONS (1)
  - Weight decreased [Not Recovered/Not Resolved]
